FAERS Safety Report 4913381-7 (Version None)
Quarter: 2006Q1

REPORT INFORMATION
  Report Type: 
  Country: None (occurrence: None)
  Receive Date: 20060210
  Receipt Date: 20060206
  Transmission Date: 20060701
  Serious: Yes (Hospitalization)
  Sender: FDA-Public Use
  Company Number: B0409336A

PATIENT
  Age: 39 Year
  Sex: Female

DRUGS (1)
  1. AMOXIL [Suspect]
     Indication: DRUG USE FOR UNKNOWN INDICATION
     Dosage: 250 MG, THREE TIMES PER DAY; ORAL
     Route: 048
     Dates: start: 20050804

REACTIONS (2)
  - ABDOMINAL PAIN [None]
  - MELAENA [None]
